FAERS Safety Report 5179119-6 (Version None)
Quarter: 2006Q4

REPORT INFORMATION
  Report Type: 
  Country: None (occurrence: None)
  Receive Date: 20061219
  Receipt Date: 20061211
  Transmission Date: 20070319
  Serious: Yes (Other)
  Sender: FDA-Public Use
  Company Number: PHNU2006DE04125

PATIENT
  Age: 82 Year
  Sex: Female

DRUGS (1)
  1. FAMVIR ZOSTER [Suspect]
     Indication: HERPES ZOSTER
     Dosage: UNK, UNK
     Route: 048
     Dates: start: 20060101

REACTIONS (3)
  - DRUG INEFFECTIVE [None]
  - SKIN ULCER [None]
  - SUPERINFECTION [None]
